FAERS Safety Report 7518912-9 (Version None)
Quarter: 2011Q2

REPORT INFORMATION
  Report Type: 
  Country: None (occurrence: None)
  Receive Date: 20110602
  Receipt Date: 20110531
  Transmission Date: 20111010
  Serious: Yes (Other)
  Sender: FDA-Public Use
  Company Number: PE-PFIZER INC-2011118944

PATIENT
  Age: 71 Year
  Sex: Male

DRUGS (3)
  1. PLAVIX [Concomitant]
     Indication: ANTIPLATELET THERAPY
     Dosage: UNK
     Route: 048
     Dates: start: 20100601
  2. LIPITOR [Suspect]
     Dosage: 20 MG, 1X/DAY
     Route: 048
  3. LIPITOR [Suspect]
     Indication: DYSLIPIDAEMIA
     Dosage: 80 MG, 1X/DAY
     Route: 048
     Dates: start: 20100601

REACTIONS (3)
  - MYALGIA [None]
  - SKIN DISCOLOURATION [None]
  - MUSCLE ATROPHY [None]
